FAERS Safety Report 10655089 (Version 2)
Quarter: 2015Q1

REPORT INFORMATION
  Report Type: Spontaneous
  Country: US (occurrence: US)
  Receive Date: 20141216
  Receipt Date: 20150121
  Transmission Date: 20150720
  Serious: Yes (Hospitalization)
  Sender: FDA-Public Use
  Company Number: US-ASTRAZENECA-2014SE95834

PATIENT
  Age: 882 Month
  Sex: Male
  Weight: 121.6 kg

DRUGS (3)
  1. ASPIRIN. [Concomitant]
     Active Substance: ASPIRIN
  2. SIMVASTATIN. [Concomitant]
     Active Substance: SIMVASTATIN
  3. SYMBICORT [Suspect]
     Active Substance: BUDESONIDE\FORMOTEROL FUMARATE DIHYDRATE
     Indication: CHRONIC OBSTRUCTIVE PULMONARY DISEASE
     Dosage: 160/4.5 MCG, 2 PUFFS BID
     Route: 055

REACTIONS (7)
  - Pneumonia [Recovered/Resolved]
  - Hypokalaemia [Recovered/Resolved]
  - Dyspnoea [Not Recovered/Not Resolved]
  - Sleep apnoea syndrome [Unknown]
  - Abdominal discomfort [Unknown]
  - Device misuse [Unknown]
  - Diarrhoea [Unknown]

NARRATIVE: CASE EVENT DATE: 2014
